FAERS Safety Report 9516478 (Version 3)
Quarter: 2014Q1

REPORT INFORMATION
  Report Type: Spontaneous
  Country: US (occurrence: US)
  Receive Date: 20130911
  Receipt Date: 20140227
  Transmission Date: 20141002
  Serious: No
  Sender: FDA-Public Use
  Company Number: US-PFIZER INC-2013259978

PATIENT
  Age: 69 Year
  Sex: Female
  Weight: 90.7 kg

DRUGS (10)
  1. XELJANZ [Suspect]
     Indication: RHEUMATOID ARTHRITIS
     Dosage: 5 MG, 2X/DAY
     Route: 048
  2. XELJANZ [Suspect]
     Dosage: 5 MG, DAILY
     Route: 054
  3. TRAMADOL HYDROCHLORIDE [Concomitant]
     Dosage: 50 MG, UNK
  4. OMEPRAZOLE [Concomitant]
     Dosage: 10 MG, UNK
  5. SIMVASTATIN [Concomitant]
     Dosage: 10 MG, UNK
  6. VITAMIN D [Concomitant]
     Dosage: 50000 IU, UNK
  7. LEXAPRO [Concomitant]
     Dosage: 10 MG, UNK
  8. DICLOFENAC [Concomitant]
     Dosage: 25 MG, UNK
  9. MIRALAX [Concomitant]
     Dosage: 3350 NF, UNK
  10. OXYCODONE [Concomitant]
     Dosage: 20 MG, UNK

REACTIONS (2)
  - Constipation [Unknown]
  - Memory impairment [Unknown]
